FAERS Safety Report 16978499 (Version 3)
Quarter: 2019Q4

REPORT INFORMATION
  Report Type: Spontaneous
  Country: JP (occurrence: JP)
  Receive Date: 20191031
  Receipt Date: 20191108
  Transmission Date: 20200122
  Serious: Yes (Life-Threatening, Hospitalization, Other)
  Sender: FDA-Public Use
  Company Number: JP-PFIZER INC-2019464514

PATIENT
  Age: 67 Year
  Sex: Male

DRUGS (3)
  1. MEROPENEM. [Suspect]
     Active Substance: MEROPENEM
     Indication: PANCREATITIS ACUTE
     Dosage: 1.5 G, DAILY
     Dates: start: 2017, end: 2017
  2. NAFAMOSTAT MESILATE [Concomitant]
     Active Substance: NAFAMOSTAT MESYLATE
     Indication: PANCREATITIS ACUTE
     Dosage: 240 MG, 1X/DAY
     Dates: start: 2017, end: 2017
  3. INSULIN [Concomitant]
     Active Substance: INSULIN NOS
     Dosage: UNK

REACTIONS (2)
  - Systemic candida [Recovered/Resolved]
  - Candida endophthalmitis [Recovered/Resolved]

NARRATIVE: CASE EVENT DATE: 2017
